FAERS Safety Report 8550699-3 (Version None)
Quarter: 2012Q3

REPORT INFORMATION
  Report Type: 
  Country: None (occurrence: None)
  Receive Date: 20120730
  Receipt Date: 20120720
  Transmission Date: 20120928
  Serious: Yes (Other)
  Sender: FDA-Public Use
  Company Number: BR-GLAXOSMITHKLINE-A0987255A

PATIENT
  Sex: Female
  Weight: 66 kg

DRUGS (5)
  1. LEVOTHYROXINE SODIUM [Concomitant]
     Dosage: 1TAB PER DAY
     Dates: start: 19920101
  2. FLUOXETINE HCL [Concomitant]
     Dosage: 2TAB THREE TIMES PER DAY
     Dates: start: 20040101
  3. WELLBUTRIN SR [Suspect]
     Indication: PRODUCT USED FOR UNKNOWN INDICATION
     Dosage: 150MG PER DAY
     Route: 065
     Dates: start: 20120705, end: 20120707
  4. CLONAZEPAM [Concomitant]
     Dosage: 1TAB PER DAY
     Dates: start: 20040101
  5. HYDROCHLOROTHIAZIDE [Suspect]
     Indication: URINARY RETENTION
     Route: 065
     Dates: start: 20120708

REACTIONS (4)
  - CHEST PAIN [None]
  - HYPOGLYCAEMIA [None]
  - URINARY RETENTION [None]
  - TACHYCARDIA [None]
